FAERS Safety Report 15209988 (Version 1)
Quarter: 2018Q3

REPORT INFORMATION
  Report Type: Spontaneous
  Country: US (occurrence: US)
  Receive Date: 20180727
  Receipt Date: 20180727
  Transmission Date: 20181010
  Serious: No
  Sender: FDA-Public Use
  Company Number: US-SUNOVION-2018SUN002947

PATIENT
  Sex: Male
  Weight: 82.86 kg

DRUGS (6)
  1. BROVANA [Suspect]
     Active Substance: ARFORMOTEROL TARTRATE
     Indication: EMPHYSEMA
     Dosage: UNK, SINGLE
     Route: 055
  2. ALBUTEROL. [Concomitant]
     Active Substance: ALBUTEROL
     Indication: CHRONIC OBSTRUCTIVE PULMONARY DISEASE
  3. BROVANA [Suspect]
     Active Substance: ARFORMOTEROL TARTRATE
     Indication: CHRONIC OBSTRUCTIVE PULMONARY DISEASE
  4. LONHALA MAGNAIR [Concomitant]
     Active Substance: GLYCOPYRROLATE
     Indication: EMPHYSEMA
     Dosage: UNK, SINGLE
     Route: 055
     Dates: start: 20180710, end: 20180710
  5. ALBUTEROL. [Concomitant]
     Active Substance: ALBUTEROL
     Indication: EMPHYSEMA
     Dosage: UNK, TID
     Route: 055
  6. LONHALA MAGNAIR [Concomitant]
     Active Substance: GLYCOPYRROLATE
     Indication: CHRONIC OBSTRUCTIVE PULMONARY DISEASE

REACTIONS (2)
  - Malaise [Recovered/Resolved]
  - Feeling abnormal [Unknown]
